FAERS Safety Report 16577747 (Version 1)
Quarter: 2019Q3

REPORT INFORMATION
  Report Type: Report from Study
  Country: US (occurrence: US)
  Receive Date: 20190716
  Receipt Date: 20190716
  Transmission Date: 20191004
  Serious: Yes (Other)
  Sender: FDA-Public Use
  Company Number: US-MYLANLABS-2019M1065844

PATIENT
  Age: 80 Year
  Sex: Female

DRUGS (3)
  1. TRIFLURIDINE. [Concomitant]
     Active Substance: TRIFLURIDINE
     Indication: OPHTHALMIC HERPES SIMPLEX
     Dosage: 5 TIMES A DAY
     Route: 065
  2. TRIFLURIDINE. [Concomitant]
     Active Substance: TRIFLURIDINE
     Dosage: 2 TIMES A DAY
     Route: 065
  3. VALACICLOVIR [Suspect]
     Active Substance: VALACYCLOVIR HYDROCHLORIDE
     Indication: OPHTHALMIC HERPES SIMPLEX
     Dosage: 3 TIMES A DAY
     Route: 048

REACTIONS (1)
  - Drug ineffective [Unknown]
